FAERS Safety Report 13131935 (Version 1)
Quarter: 2017Q1

REPORT INFORMATION
  Report Type: Spontaneous
  Country: US (occurrence: US)
  Receive Date: 20170119
  Receipt Date: 20170119
  Transmission Date: 20170428
  Serious: No
  Sender: FDA-Public Use
  Company Number: US-WATSON-2016-09658

PATIENT
  Age: 62 Year
  Sex: Male

DRUGS (2)
  1. ALBUTEROL SULFATE-IPRATROPIUM BROMIDE (WATSON LABORATORIES) [Suspect]
     Active Substance: ALBUTEROL SULFATE\IPRATROPIUM BROMIDE
     Indication: DYSPNOEA
     Dosage: 1 VIAL, Q6H, PRN
     Route: 055
     Dates: start: 20160329
  2. ALBUTEROL SULFATE-IPRATROPIUM BROMIDE (WATSON LABORATORIES) [Suspect]
     Active Substance: ALBUTEROL SULFATE\IPRATROPIUM BROMIDE
     Indication: WHEEZING

REACTIONS (1)
  - Drug effect delayed [Not Recovered/Not Resolved]

NARRATIVE: CASE EVENT DATE: 20160329
